FAERS Safety Report 14803539 (Version 1)
Quarter: 2018Q2

REPORT INFORMATION
  Report Type: Spontaneous
  Country: US (occurrence: US)
  Receive Date: 20180425
  Receipt Date: 20180425
  Transmission Date: 20180711
  Serious: Yes (Other)
  Sender: FDA-Public Use
  Company Number: US-BEH-2018089920

PATIENT
  Sex: Male
  Weight: 59.86 kg

DRUGS (11)
  1. LEVETIRACETAM. [Concomitant]
     Active Substance: LEVETIRACETAM
  2. EPINEPHRINE. [Concomitant]
     Active Substance: EPINEPHRINE
  3. ONFI [Concomitant]
     Active Substance: CLOBAZAM
  4. LOSARTAN. [Concomitant]
     Active Substance: LOSARTAN
  5. VIMPAT [Concomitant]
     Active Substance: LACOSAMIDE
  6. TOPIRAMATE. [Concomitant]
     Active Substance: TOPIRAMATE
  7. HIZENTRA [Suspect]
     Active Substance: HUMAN IMMUNOGLOBULIN G
     Indication: IMMUNODEFICIENCY COMMON VARIABLE
     Dosage: 4 G, UNK
     Route: 058
     Dates: start: 20130116
  8. DIPHENHYDRAMINE. [Concomitant]
     Active Substance: DIPHENHYDRAMINE
  9. BANZEL [Concomitant]
     Active Substance: RUFINAMIDE
  10. ANAKIT [Concomitant]
  11. HIZENTRA [Suspect]
     Active Substance: HUMAN IMMUNOGLOBULIN G
     Dosage: UNK
     Route: 058

REACTIONS (2)
  - Infusion site rash [Recovered/Resolved]
  - Surgery [Unknown]
